FAERS Safety Report 18738357 (Version 1)
Quarter: 2021Q1

REPORT INFORMATION
  Report Type: Spontaneous
  Country: US (occurrence: US)
  Receive Date: 20210114
  Receipt Date: 20210114
  Transmission Date: 20210419
  Serious: Yes (Hospitalization, Other)
  Sender: FDA-Public Use
  Company Number: US-CIPLA LTD.-2021US00090

PATIENT

DRUGS (2)
  1. VALACYCLOVIR [Suspect]
     Active Substance: VALACYCLOVIR HYDROCHLORIDE
     Indication: HERPES ZOSTER
     Dosage: 1 GRAM, TID (HIV DOSING)
     Route: 065
  2. VALACYCLOVIR [Suspect]
     Active Substance: VALACYCLOVIR HYDROCHLORIDE
     Dosage: 500 MILLIGRAM, DAILY (FOR 7 DAYS)
     Route: 065

REACTIONS (5)
  - Drug titration error [Unknown]
  - Agitation [Recovering/Resolving]
  - Confusional state [Recovering/Resolving]
  - Neurotoxicity [Recovering/Resolving]
  - Somnolence [Recovering/Resolving]
